FAERS Safety Report 7861671-0 (Version None)
Quarter: 2011Q4

REPORT INFORMATION
  Report Type: 
  Country: None (occurrence: None)
  Receive Date: 20111027
  Receipt Date: 20111019
  Transmission Date: 20120403
  Serious: Yes (Other)
  Sender: FDA-Public Use
  Company Number: US-US-EMD SERONO, INC.-7091325

PATIENT
  Sex: Male
  Weight: 97 kg

DRUGS (3)
  1. REBIF [Suspect]
     Indication: MULTIPLE SCLEROSIS
     Route: 058
     Dates: start: 20080408
  2. TYLENOL-500 [Concomitant]
     Indication: PREMEDICATION
  3. NAPROXEN [Concomitant]
     Indication: PREMEDICATION

REACTIONS (3)
  - INJECTION SITE ERYTHEMA [None]
  - SKIN NECROSIS [None]
  - INJECTION SITE HAEMATOMA [None]
